FAERS Safety Report 5661935-5 (Version None)
Quarter: 2008Q1

REPORT INFORMATION
  Report Type: 
  Country: None (occurrence: None)
  Receive Date: 20080310
  Receipt Date: 20080310
  Transmission Date: 20080703
  Serious: Yes (Hospitalization)
  Sender: FDA-Public Use
  Company Number: None

PATIENT
  Sex: Male
  Weight: 81.6 kg

DRUGS (2)
  1. DACARBAZINE [Suspect]
     Indication: MALIGNANT MELANOMA
     Dosage: 1600MG, IV Q21DAYS
     Route: 042
     Dates: start: 20080111, end: 20080201
  2. DASATINIB - 50MG - BRISTOL-MYERS-SQUIBB [Suspect]
     Indication: MALIGNANT MELANOMA
     Dosage: 50MG ORALLY BID
     Route: 048
     Dates: start: 20080112, end: 20080218

REACTIONS (3)
  - DISEASE PROGRESSION [None]
  - GASTROINTESTINAL HAEMORRHAGE [None]
  - MASS [None]
